FAERS Safety Report 21213614 (Version 2)
Quarter: 2022Q3

REPORT INFORMATION
  Report Type: Spontaneous
  Country: US (occurrence: US)
  Receive Date: 20220816
  Receipt Date: 20220823
  Transmission Date: 20221027
  Serious: No
  Sender: FDA-Public Use
  Company Number: US-BRISTOL-MYERS SQUIBB COMPANY-2022-089707

PATIENT
  Age: 55 Year
  Sex: Female

DRUGS (2)
  1. ORENCIA [Suspect]
     Active Substance: ABATACEPT
     Indication: Psoriatic arthropathy
     Route: 058
     Dates: start: 20220526
  2. ORENCIA [Suspect]
     Active Substance: ABATACEPT
     Dosage: DOSE : 125MG/ML
     Route: 058
     Dates: start: 20220315

REACTIONS (7)
  - Rash [Unknown]
  - Pruritus [Unknown]
  - Skin burning sensation [Unknown]
  - Alopecia [Unknown]
  - Rash [Unknown]
  - Gait disturbance [Unknown]
  - Condition aggravated [Unknown]
